FAERS Safety Report 7172411 (Version 8)
Quarter: 2013Q4

REPORT INFORMATION
  Report Type: Spontaneous
  Country: US (occurrence: US)
  Receive Date: 20091110
  Receipt Date: 20131025
  Transmission Date: 20140711
  Serious: Yes (Hospitalization, Other)
  Sender: FDA-Public Use
  Company Number: US-JNJFOC-20091101254

PATIENT
  Age: 55 Year
  Sex: Male
  Weight: 103.87 kg

DRUGS (19)
  1. REMICADE [Suspect]
     Indication: RHEUMATOID ARTHRITIS
     Route: 042
     Dates: start: 20080917
  2. REMICADE [Suspect]
     Indication: RHEUMATOID ARTHRITIS
     Route: 042
     Dates: start: 20081017
  3. REMICADE [Suspect]
     Indication: RHEUMATOID ARTHRITIS
     Route: 042
     Dates: start: 20081216
  4. REMICADE [Suspect]
     Indication: RHEUMATOID ARTHRITIS
     Dosage: 41ST INFLIXIMAB INFUSION, 8MG/KG.
     Route: 042
  5. REMICADE [Suspect]
     Indication: RHEUMATOID ARTHRITIS
     Dosage: APPROXIMATELY RECEIVED A TOTAL OF 8 INFUSIONS
     Route: 042
     Dates: start: 20090527, end: 20090527
  6. METHOTREXATE [Concomitant]
     Indication: RHEUMATOID ARTHRITIS
     Route: 065
     Dates: start: 20040803, end: 20100212
  7. ZYRTEC [Concomitant]
     Indication: PREMEDICATION
     Route: 048
     Dates: start: 20090527
  8. BENADRYL [Concomitant]
     Indication: PREMEDICATION
     Route: 048
     Dates: start: 20090527
  9. PREDNISOLONE [Concomitant]
     Indication: RHEUMATOID ARTHRITIS
     Route: 065
     Dates: start: 20080909
  10. MOBIC [Concomitant]
     Indication: RHEUMATOID ARTHRITIS
     Route: 065
     Dates: start: 20051117
  11. FOLIC ACID [Concomitant]
     Indication: RHEUMATOID ARTHRITIS
     Route: 065
     Dates: start: 20040803
  12. MULTIPLE VITAMIN [Concomitant]
     Route: 065
     Dates: start: 20030721
  13. VITAMIN C [Concomitant]
     Route: 065
  14. VITAMIN B6 [Concomitant]
     Route: 065
  15. VITAMINE E [Concomitant]
     Route: 065
  16. VITAMIN B12 [Concomitant]
     Route: 065
  17. VITAMIN B COMPLEX [Concomitant]
     Route: 065
  18. MELOXICAM [Concomitant]
     Route: 065
  19. CYMBALTA [Concomitant]
     Route: 065

REACTIONS (15)
  - Syncope [Unknown]
  - Hyperviscosity syndrome [Recovered/Resolved]
  - Drug hypersensitivity [Recovered/Resolved]
  - Infusion related reaction [Recovered/Resolved]
  - Upper respiratory tract infection [Unknown]
  - Gastrooesophageal reflux disease [Unknown]
  - Lumbar spinal stenosis [Recovering/Resolving]
  - Tracheobronchitis [Unknown]
  - Dehydration [Unknown]
  - Alanine aminotransferase increased [Recovering/Resolving]
  - Aspartate aminotransferase increased [Recovering/Resolving]
  - Red blood cell sedimentation rate increased [Recovering/Resolving]
  - Dilatation atrial [Unknown]
  - Mitral valve incompetence [Unknown]
  - Adverse drug reaction [Unknown]
